FAERS Safety Report 8987719 (Version 1)
Quarter: 2012Q4

REPORT INFORMATION
  Report Type: 
  Country: US (occurrence: US)
  Receive Date: 20121227
  Receipt Date: 20121227
  Transmission Date: 20130627
  Serious: No
  Sender: FDA-Public Use
  Company Number: US-PFIZER INC-2012326920

PATIENT
  Age: 73 Year
  Sex: Female
  Weight: 58.96 kg

DRUGS (5)
  1. FLECTOR [Suspect]
     Indication: PROCEDURAL PAIN
     Dosage: UNK
     Dates: start: 20121220
  2. TRAMADOL AND ACETAMINOPHEN [Suspect]
     Indication: PAIN
     Dosage: 362.5 mg, 3x/day
     Route: 048
     Dates: start: 2012, end: 20121219
  3. LOSARTAN [Concomitant]
     Indication: BLOOD PRESSURE ABNORMAL
     Dosage: 50 mg, daily
  4. SIMVASTATIN [Concomitant]
     Indication: HIGH CHOLESTEROL
     Dosage: 40 mg, daily
  5. TYLENOL [Concomitant]
     Indication: PAIN
     Dosage: 500 mg, as needed
     Dates: start: 201212

REACTIONS (3)
  - Gastrointestinal disorder [Unknown]
  - Gastric disorder [Unknown]
  - Burning sensation [Recovered/Resolved]
